FAERS Safety Report 24603352 (Version 1)
Quarter: 2024Q4

REPORT INFORMATION
  Report Type: Spontaneous
  Country: US (occurrence: None)
  Receive Date: 20241108
  Receipt Date: 20241108
  Transmission Date: 20250115
  Serious: Yes (Disabling)
  Sender: Public
  Company Number: None

PATIENT
  Age: 32 Year
  Sex: Female
  Weight: 74.7 kg

DRUGS (1)
  1. BUPROPION HYDROCHLORIDE [Suspect]
     Active Substance: BUPROPION HYDROCHLORIDE
     Indication: Weight decreased
     Dosage: 180 TABLET (S) DAILY ORAL
     Route: 048
     Dates: start: 20241011, end: 20241103

REACTIONS (1)
  - Tinnitus [None]

NARRATIVE: CASE EVENT DATE: 20241102
